FAERS Safety Report 10125727 (Version 2)
Quarter: 2014Q2

REPORT INFORMATION
  Report Type: Spontaneous
  Country: CN (occurrence: CN)
  Receive Date: 20140425
  Receipt Date: 20140516
  Transmission Date: 20141212
  Serious: Yes (Hospitalization)
  Sender: FDA-Public Use
  Company Number: CN-JNJFOC-20140410221

PATIENT
  Age: 5 Year
  Sex: Female
  Weight: 18 kg

DRUGS (2)
  1. TYLENOL INFANT UNSPECIFIED [Suspect]
     Route: 048
  2. TYLENOL INFANT UNSPECIFIED [Suspect]
     Indication: HYPERPYREXIA
     Route: 048
     Dates: start: 20130218, end: 20130218

REACTIONS (1)
  - Urticaria [Recovered/Resolved]
